FAERS Safety Report 18672452 (Version 2)
Quarter: 2024Q1

REPORT INFORMATION
  Report Type: Spontaneous
  Country: US (occurrence: US)
  Receive Date: 20201228
  Receipt Date: 20240311
  Transmission Date: 20240409
  Serious: Yes (Other)
  Sender: FDA-Public Use
  Company Number: US-PFIZER INC-2020509220

PATIENT
  Age: 42 Year
  Sex: Female

DRUGS (7)
  1. XELJANZ XR [Suspect]
     Active Substance: TOFACITINIB CITRATE
     Indication: Rheumatoid arthritis
     Dosage: 11 MG, DAILY
     Route: 048
     Dates: start: 20191101, end: 2020
  2. XELJANZ XR [Suspect]
     Active Substance: TOFACITINIB CITRATE
     Dosage: 11 MG, DAILY
     Route: 048
     Dates: start: 2020, end: 20240219
  3. GABAPENTIN [Concomitant]
     Active Substance: GABAPENTIN
     Dosage: 600 MG, UNK
  4. CELECOXIB [Concomitant]
     Active Substance: CELECOXIB
     Dosage: 10 MG, UNK
  5. NORTRIPTYLINE HYDROCHLORIDE [Concomitant]
     Active Substance: NORTRIPTYLINE HYDROCHLORIDE
     Dosage: 10 MG, UNK
  6. CELEBREX [Concomitant]
     Active Substance: CELECOXIB
     Dosage: 100 MG, UNK
  7. METHOTREXATE [Concomitant]
     Active Substance: METHOTREXATE
     Dosage: 2.5 MG, UNK

REACTIONS (7)
  - COVID-19 [Recovered/Resolved]
  - Influenza [Recovering/Resolving]
  - Illness [Recovering/Resolving]
  - Aphonia [Recovering/Resolving]
  - Pyrexia [Recovering/Resolving]
  - Cough [Recovering/Resolving]
  - Rhinorrhoea [Recovering/Resolving]

NARRATIVE: CASE EVENT DATE: 20201001
